FAERS Safety Report 21401809 (Version 1)
Quarter: 2022Q3

REPORT INFORMATION
  Report Type: Spontaneous
  Country: US (occurrence: None)
  Receive Date: 20220930
  Receipt Date: 20220930
  Transmission Date: 20221026
  Serious: Yes (Other)
  Sender: FDA-Public Use
  Company Number: None

PATIENT
  Age: 46 Year
  Sex: Male
  Weight: 40.3 kg

DRUGS (15)
  1. BEBTELOVIMAB [Suspect]
     Active Substance: BEBTELOVIMAB
     Indication: COVID-19
     Dosage: FREQUENCY : ONCE;?
     Route: 042
     Dates: start: 20220923, end: 20220923
  2. ACETAMINOPHEN [Concomitant]
     Active Substance: ACETAMINOPHEN
     Dates: start: 20220923, end: 20220925
  3. Methylprednisolone 40 mg [Concomitant]
     Dates: start: 20220923
  4. Morphine 4 mg [Concomitant]
     Dates: start: 20220923
  5. ONDANSETRON [Concomitant]
     Active Substance: ONDANSETRON
     Dates: start: 20220923
  6. CEFTRIAXONE [Concomitant]
     Active Substance: CEFTRIAXONE
     Dates: start: 20220924
  7. AMLODIPINE BESYLATE [Concomitant]
     Active Substance: AMLODIPINE BESYLATE
     Dates: start: 20220924
  8. Cholestyramine 4 grams [Concomitant]
     Dates: start: 20220924
  9. Dronabinol 2.5 mg [Concomitant]
     Dates: start: 20220924
  10. ENOXAPARIN [Concomitant]
     Active Substance: ENOXAPARIN
     Dates: start: 20220924
  11. GABAPENTIN [Concomitant]
     Active Substance: GABAPENTIN
     Dates: start: 20220924
  12. Metoprolol Tartrate 75 mg [Concomitant]
     Dates: start: 20220924
  13. PANTOPRAZOLE SODIUM [Concomitant]
     Active Substance: PANTOPRAZOLE SODIUM
     Dates: start: 20220924
  14. Ramelteon 8 mg [Concomitant]
     Dates: start: 20220924
  15. TAMSULOSIN [Concomitant]
     Active Substance: TAMSULOSIN
     Dates: start: 20220924

REACTIONS (4)
  - Face oedema [None]
  - Erythema [None]
  - Swollen tongue [None]
  - Urinary tract infection [None]

NARRATIVE: CASE EVENT DATE: 20220925
